FAERS Safety Report 9237882 (Version 1)
Quarter: 2013Q2

REPORT INFORMATION
  Report Type: Spontaneous
  Country: US (occurrence: US)
  Receive Date: 20130418
  Receipt Date: 20130418
  Transmission Date: 20140414
  Serious: No
  Sender: FDA-Public Use
  Company Number: US-009507513-1304USA007052

PATIENT
  Sex: Male

DRUGS (4)
  1. FORMOTEROL FUMARATE [Suspect]
     Indication: LUNG NEOPLASM MALIGNANT
     Dosage: 12 MICROGRAM, QD
     Route: 055
     Dates: start: 2010
  2. PROAIR (FLUTICASONE PROPIONATE) [Concomitant]
  3. SPIRIVA [Concomitant]
  4. TEMAZEPAM [Concomitant]

REACTIONS (1)
  - Drug ineffective [Unknown]
